FAERS Safety Report 8417028-7 (Version None)
Quarter: 2012Q2

REPORT INFORMATION
  Report Type: 
  Country: None (occurrence: None)
  Receive Date: 20120606
  Receipt Date: 20120601
  Transmission Date: 20120825
  Serious: Yes (Hospitalization)
  Sender: FDA-Public Use
  Company Number: JP-JNJFOC-20120410508

PATIENT
  Sex: Female
  Weight: 48 kg

DRUGS (18)
  1. GOLIMUMAB [Concomitant]
     Indication: RHEUMATOID ARTHRITIS
     Route: 058
     Dates: start: 20120201, end: 20120221
  2. ITRACONAZOLE [Concomitant]
     Route: 048
  3. TRAMADOL HYDROCHLORIDE AND ACETAMINOPHEN [Suspect]
     Dosage: 1 PER 1 DAY
     Route: 048
     Dates: start: 20120113, end: 20120123
  4. TRAMADOL HYDROCHLORIDE AND ACETAMINOPHEN [Suspect]
     Dosage: 1 PER 1 DAY
     Route: 048
     Dates: start: 20120124, end: 20120203
  5. LANSOPRAZOLE [Concomitant]
     Indication: PROPHYLAXIS
     Route: 048
  6. DOMPERIDONE [Suspect]
     Dosage: 1 PER 1 DAY
     Route: 048
     Dates: start: 20120124, end: 20120203
  7. CYTOTEC [Concomitant]
     Indication: PROPHYLAXIS
     Route: 048
  8. TRAMADOL HYDROCHLORIDE AND ACETAMINOPHEN [Suspect]
     Indication: RHEUMATOID ARTHRITIS
     Dosage: 1 PER 1 DAY
     Route: 048
     Dates: start: 20111226, end: 20120112
  9. RHEUMATREX [Suspect]
     Indication: PRODUCT USED FOR UNKNOWN INDICATION
     Route: 048
     Dates: start: 20120206
  10. TOCILIZUMAB [Suspect]
     Indication: PRODUCT USED FOR UNKNOWN INDICATION
     Route: 041
     Dates: end: 20111221
  11. FORTEO [Concomitant]
     Route: 058
  12. DOMPERIDONE [Suspect]
     Indication: PRODUCT USED FOR UNKNOWN INDICATION
     Dosage: 1 PER 1 DAY
     Route: 048
     Dates: start: 20111226, end: 20120112
  13. DOMPERIDONE [Suspect]
     Dosage: 1 PER 1 DAY
     Route: 048
     Dates: start: 20120113, end: 20120123
  14. FOLIAMIN [Concomitant]
     Indication: PROPHYLAXIS
     Route: 048
  15. URSO 250 [Concomitant]
     Indication: PROPHYLAXIS
     Route: 048
  16. CLARITHROMYCIN [Concomitant]
     Route: 048
  17. DIOVAN [Concomitant]
     Route: 048
  18. LIPITOR [Concomitant]
     Route: 048

REACTIONS (1)
  - GASTRIC CANCER [None]
